FAERS Safety Report 8857606 (Version 1)
Quarter: 2012Q4

REPORT INFORMATION
  Report Type: 
  Country: US (occurrence: US)
  Receive Date: 20121024
  Receipt Date: 20121024
  Transmission Date: 20130627
  Serious: Yes (Death)
  Sender: FDA-Public Use
  Company Number: US-VERTEX PHARMACEUTICAL INC.-2012-023435

PATIENT
  Sex: Male
  Weight: 84.8 kg

DRUGS (3)
  1. VX-950 [Suspect]
     Indication: HEPATITIS C
     Dosage: 750 mg, tid
     Route: 048
     Dates: start: 20120402, end: 201206
  2. PEGASYS [Suspect]
     Indication: HEPATITIS C
     Dosage: 180 ?g/kg, UNK
     Route: 058
     Dates: start: 20120402
  3. RIBASPHERE [Suspect]
     Indication: HEPATITIS C
     Dosage: 600 mg, UNK
     Route: 048
     Dates: start: 20120402

REACTIONS (1)
  - Death [Fatal]
